FAERS Safety Report 8856661 (Version 1)
Quarter: 2012Q4

REPORT INFORMATION
  Report Type: Spontaneous
  Country: GB (occurrence: None)
  Receive Date: 20121019
  Receipt Date: 20121019
  Transmission Date: 20130627
  Serious: Yes (Other)
  Sender: FDA-Public Use
  Company Number: 1445713

PATIENT
  Age: 48 Year
  Sex: Male
  Weight: 32.66 kg

DRUGS (6)
  1. CALCIUM FOLINATE [Suspect]
     Indication: CHEMOTHERAPY
  2. IRINOTECAN HYDROCHLORIDE [Suspect]
  3. OXALIPLATIN [Suspect]
     Dosage: cyclical
     Dates: start: 20080305, end: 20081020
  4. FLUOROURACIL [Suspect]
  5. MAXOLON [Concomitant]
  6. ANTIBIOTICS [Concomitant]

REACTIONS (9)
  - Neuropathy peripheral [None]
  - Renal impairment [None]
  - Sinusitis [None]
  - Nasopharyngitis [None]
  - Decreased appetite [None]
  - Nasopharyngitis [None]
  - Vein pain [None]
  - Diarrhoea [None]
  - Diarrhoea [None]
